FAERS Safety Report 8538847 (Version 3)
Quarter: 2013Q2

REPORT INFORMATION
  Report Type: Spontaneous
  Country: US (occurrence: None)
  Receive Date: 20120420
  Receipt Date: 20130521
  Transmission Date: 20140414
  Serious: Yes (Death)
  Sender: FDA-Public Use
  Company Number: AUR-APL-2012-01738

PATIENT
  Age: 50 Year
  Sex: Female
  Weight: 74.5 kg

DRUGS (4)
  1. LEVETIRACETAM [Suspect]
     Indication: CONVULSION
     Dosage: (2 IN 1 D), ORAL
     Route: 048
     Dates: start: 20100429
  2. DIVALPROEX SODIUM [Suspect]
     Indication: CONVULSION
     Dosage: (5 IN 1 D), ORAL
     Route: 048
     Dates: start: 20100412
  3. UNSPECIFIED INGREDIENT [Suspect]
     Indication: CONVULSION
     Dosage: INTRAMUSCULAR
     Route: 030
  4. LYRICA [Suspect]
     Indication: CONVULSION
     Dosage: (75 MG), ORAL
     Route: 048
     Dates: start: 20100521

REACTIONS (2)
  - Choking [None]
  - Convulsion [None]
